FAERS Safety Report 4465740-7 (Version None)
Quarter: 2004Q3

REPORT INFORMATION
  Report Type: 
  Country: None (occurrence: None)
  Receive Date: 20040929
  Receipt Date: 20040929
  Transmission Date: 20050211
  Serious: Yes (Death)
  Sender: FDA-Public Use
  Company Number: None

PATIENT
  Sex: Male
  Weight: 39.9 kg

DRUGS (2)
  1. CLOFARABINE  1 MG/ML  ILEX [Suspect]
     Indication: ACUTE LYMPHOCYTIC LEUKAEMIA
     Dosage: 52 MG   DAILY X''S 5  INTRAVENOUS
     Route: 042
     Dates: start: 20040608, end: 20040612
  2. CLOFARABINE  1 MG/ML  ILEX [Suspect]
     Indication: ACUTE LYMPHOCYTIC LEUKAEMIA
     Dosage: 52 MG   DAILY X''S 5  INTRAVENOUS
     Route: 042
     Dates: start: 20040709, end: 20040713

REACTIONS (6)
  - ACUTE RESPIRATORY DISTRESS SYNDROME [None]
  - HYPOTENSION [None]
  - LEUKAEMIA [None]
  - NEOPLASM RECURRENCE [None]
  - PANCYTOPENIA [None]
  - STREPTOCOCCAL SEPSIS [None]
